FAERS Safety Report 9161216 (Version 2)
Quarter: 2013Q1

REPORT INFORMATION
  Report Type: Spontaneous
  Country: CO (occurrence: CO)
  Receive Date: 20130313
  Receipt Date: 20130318
  Transmission Date: 20140127
  Serious: Yes (Other)
  Sender: FDA-Public Use
  Company Number: CO-MERCK-1303COL005800

PATIENT
  Age: 57 Year
  Sex: Female
  Weight: 70 kg

DRUGS (3)
  1. VICTRELIS [Suspect]
     Dosage: EVERY 8 HOURS, TID
     Route: 048
     Dates: start: 20120711, end: 20120714
  2. PEGINTERFERON ALFA-2B [Suspect]
     Dosage: 80 MICROGRAM, UNK
     Route: 058
     Dates: start: 20120714
  3. RIBAVIRIN [Suspect]
     Dosage: 5 CAPSULES PER DAY
     Route: 048
     Dates: start: 20120630

REACTIONS (2)
  - Dehydration [Recovered/Resolved]
  - Discomfort [Recovered/Resolved]
